FAERS Safety Report 6752979-0 (Version None)
Quarter: 2010Q2

REPORT INFORMATION
  Report Type: 
  Country: None (occurrence: None)
  Receive Date: 20100603
  Receipt Date: 20100527
  Transmission Date: 20101027
  Serious: Yes (Hospitalization, Other)
  Sender: FDA-Public Use
  Company Number: GB-BAYER-200912542BNE

PATIENT
  Age: 54 Year
  Sex: Female

DRUGS (1)
  1. BETAFERON [Suspect]
     Indication: MULTIPLE SCLEROSIS
     Dosage: STANDARD DOSES
     Route: 058
     Dates: start: 20051001, end: 20090601

REACTIONS (2)
  - ABDOMINAL PAIN [None]
  - COLON CANCER [None]
